FAERS Safety Report 4405530-4 (Version None)
Quarter: 2004Q3

REPORT INFORMATION
  Report Type: 
  Country: None (occurrence: None)
  Receive Date: 20040723
  Receipt Date: 20030923
  Transmission Date: 20050211
  Serious: Yes (Other)
  Sender: FDA-Public Use
  Company Number: US-GLAXOSMITHKLINE-A0427039A

PATIENT
  Age: 50 Year
  Sex: Male

DRUGS (6)
  1. AVANDIA [Suspect]
     Dosage: 8MG PER DAY
     Route: 048
     Dates: start: 20000928, end: 20001101
  2. GLUCOPHAGE [Concomitant]
  3. MICRONIZED GLYBURIDE [Concomitant]
  4. ACCUPRIL [Concomitant]
  5. INSULIN [Concomitant]
  6. LASIX [Concomitant]

REACTIONS (1)
  - WEIGHT INCREASED [None]
